FAERS Safety Report 26121273 (Version 1)
Quarter: 2025Q4

REPORT INFORMATION
  Report Type: Spontaneous
  Country: GB (occurrence: GB)
  Receive Date: 20251204
  Receipt Date: 20251204
  Transmission Date: 20260119
  Serious: Yes (Death, Other)
  Sender: AMGEN
  Company Number: GB-AMGEN-GBRSP2025234109

PATIENT
  Age: 11 Year
  Sex: Male

DRUGS (1)
  1. ROMIPLOSTIM [Suspect]
     Active Substance: ROMIPLOSTIM
     Indication: Immune-mediated cytopenia
     Dosage: UNK
     Route: 058

REACTIONS (5)
  - Ill-defined disorder [Fatal]
  - Myeloproliferative neoplasm [Unknown]
  - Drug ineffective for unapproved indication [Unknown]
  - Injection site pain [Unknown]
  - Off label use [Unknown]
